FAERS Safety Report 11156291 (Version 3)
Quarter: 2016Q3

REPORT INFORMATION
  Report Type: Spontaneous
  Country: GB (occurrence: GB)
  Receive Date: 20150602
  Receipt Date: 20160805
  Transmission Date: 20161109
  Serious: Yes (Hospitalization, Other)
  Sender: FDA-Public Use
  Company Number: GB-OTSUKA-2015_001762

PATIENT
  Sex: Female

DRUGS (1)
  1. ABILIFY MAINTENA [Suspect]
     Active Substance: ARIPIPRAZOLE
     Indication: PRODUCT USED FOR UNKNOWN INDICATION
     Dosage: UNK, ONCE MONTHLY
     Route: 030

REACTIONS (5)
  - Dizziness [Unknown]
  - Feeling hot [Unknown]
  - Seizure [Unknown]
  - Vomiting [Unknown]
  - Syncope [Unknown]
